FAERS Safety Report 8769642 (Version 1)
Quarter: 2012Q4

REPORT INFORMATION
  Report Type: 
  Country: JP (occurrence: JP)
  Receive Date: 20120905
  Receipt Date: 20120905
  Transmission Date: 20130627
  Serious: Yes (Hospitalization, Other)
  Sender: FDA-Public Use
  Company Number: JP-009507513-1208JPN012328

PATIENT

DRUGS (3)
  1. REFLEX [Suspect]
     Route: 048
  2. GOODMIN [Suspect]
     Route: 048
  3. AROPHALM [Suspect]
     Route: 048

REACTIONS (1)
  - Suicide attempt [Unknown]
